FAERS Safety Report 9387755 (Version 2)
Quarter: 2013Q3

REPORT INFORMATION
  Report Type: Not Available
  Country: FR (occurrence: FR)
  Receive Date: 20130708
  Receipt Date: 20130808
  Transmission Date: 20140515
  Serious: Yes (Hospitalization)
  Sender: FDA-Public Use
  Company Number: FR-NAPPMUNDI-GBR-2013-0014763

PATIENT
  Age: 81 Year
  Sex: Female

DRUGS (5)
  1. OXYCONTIN LP 20 MG, COMPRIME PELLICULE A LIBERATION PROLONGEE [Suspect]
     Indication: PAIN
     Dosage: 1 DF, BID
     Route: 048
     Dates: start: 201301, end: 20130610
  2. OXYNORMORO COMPRIME ORODISPERSIBLE 5 MG [Suspect]
     Indication: PAIN
     Dosage: UNK
     Route: 048
     Dates: start: 201301
  3. CORTANCYL [Concomitant]
     Dosage: 5 MG, UNK
     Route: 048
     Dates: end: 20130611
  4. UVEDOSE [Concomitant]
     Dosage: 100000 UNK, UNK
     Route: 048
  5. MELAXOSE [Concomitant]
     Dosage: UNK
     Dates: end: 20130609

REACTIONS (6)
  - Confusional state [Recovered/Resolved]
  - Hallucination, visual [Recovered/Resolved]
  - Disorientation [Recovered/Resolved]
  - Miosis [Recovered/Resolved]
  - Somnolence [Recovered/Resolved]
  - Bradypnoea [Recovered/Resolved]
